FAERS Safety Report 11377099 (Version 1)
Quarter: 2015Q3

REPORT INFORMATION
  Report Type: Spontaneous
  Country: US (occurrence: US)
  Receive Date: 20150813
  Receipt Date: 20150813
  Transmission Date: 20151125
  Serious: Yes (Other)
  Sender: FDA-Public Use
  Company Number: US-ABBVIE-15K-163-1443677-00

PATIENT
  Sex: Female
  Weight: 81.72 kg

DRUGS (5)
  1. DEPAKOTE ER [Suspect]
     Active Substance: DIVALPROEX SODIUM
     Route: 065
  2. DEPAKOTE ER [Suspect]
     Active Substance: DIVALPROEX SODIUM
     Route: 065
  3. XANAX [Concomitant]
     Active Substance: ALPRAZOLAM
     Indication: SLEEP DISORDER THERAPY
     Route: 065
  4. DEPAKOTE ER [Suspect]
     Active Substance: DIVALPROEX SODIUM
     Indication: MANIA
     Route: 065
     Dates: start: 2010, end: 2014
  5. ABILIFY [Suspect]
     Active Substance: ARIPIPRAZOLE
     Indication: MANIA
     Route: 065

REACTIONS (7)
  - Blindness [Recovering/Resolving]
  - Arthralgia [Recovered/Resolved]
  - Pain in extremity [Recovered/Resolved]
  - Back pain [Recovered/Resolved]
  - Nightmare [Recovered/Resolved]
  - Oedema peripheral [Unknown]
  - Weight increased [Recovering/Resolving]

NARRATIVE: CASE EVENT DATE: 2010
